FAERS Safety Report 5256766-4 (Version None)
Quarter: 2007Q1

REPORT INFORMATION
  Report Type: 
  Country: None (occurrence: None)
  Receive Date: 20070306
  Receipt Date: 20070301
  Transmission Date: 20070707
  Serious: Yes (Death, Other)
  Sender: FDA-Public Use
  Company Number: US-PFIZER INC-2007016192

PATIENT

DRUGS (2)
  1. CELEBREX [Suspect]
     Dates: start: 20021211, end: 20050201
  2. BEXTRA [Suspect]
     Dates: start: 20040801, end: 20050201

REACTIONS (1)
  - CEREBROVASCULAR ACCIDENT [None]
